FAERS Safety Report 11739938 (Version 2)
Quarter: 2015Q4

REPORT INFORMATION
  Report Type: Spontaneous
  Country: US (occurrence: US)
  Receive Date: 20151110
  Receipt Date: 20151120
  Transmission Date: 20160304
  Serious: No
  Sender: FDA-Public Use
  Company Number: US-ELI_LILLY_AND_COMPANY-US201207001569

PATIENT
  Sex: Female

DRUGS (2)
  1. FORTEO [Suspect]
     Active Substance: TERIPARATIDE
     Indication: OSTEOPOROSIS
     Dosage: 20 UG, QD
     Dates: start: 20120601
  2. FORTEO [Suspect]
     Active Substance: TERIPARATIDE
     Dosage: 20 UG, QD

REACTIONS (16)
  - Musculoskeletal disorder [Unknown]
  - Abdominal pain upper [Unknown]
  - Skin disorder [Recovering/Resolving]
  - Chest pain [Unknown]
  - Hypertension [Unknown]
  - Mass [Unknown]
  - Gait disturbance [Unknown]
  - Calcinosis [Unknown]
  - Pain in extremity [Unknown]
  - Back pain [Unknown]
  - Arthralgia [Unknown]
  - Musculoskeletal discomfort [Unknown]
  - Skin discolouration [Unknown]
  - Dry skin [Recovering/Resolving]
  - Pain [Unknown]
  - Weight bearing difficulty [Unknown]
